FAERS Safety Report 12146049 (Version 4)
Quarter: 2016Q3

REPORT INFORMATION
  Report Type: Spontaneous
  Country: US (occurrence: US)
  Receive Date: 20160304
  Receipt Date: 20160812
  Transmission Date: 20161109
  Serious: No
  Sender: FDA-Public Use
  Company Number: US-ASTRAZENECA-2016SE19315

PATIENT
  Age: 22535 Day
  Sex: Male

DRUGS (4)
  1. BRILINTA [Suspect]
     Active Substance: TICAGRELOR
     Indication: ACUTE CORONARY SYNDROME
     Route: 048
  2. LIPITOR [Concomitant]
     Active Substance: ATORVASTATIN CALCIUM
     Dates: start: 201601
  3. BRILINTA [Suspect]
     Active Substance: TICAGRELOR
     Indication: ACUTE CORONARY SYNDROME
     Route: 048
  4. BETA BLOCKER [Concomitant]
     Active Substance: UNSPECIFIED INGREDIENT
     Dates: start: 201601

REACTIONS (12)
  - Pain of skin [Unknown]
  - Fatigue [Unknown]
  - Chest discomfort [Unknown]
  - Intentional product misuse [Unknown]
  - Headache [Unknown]
  - Impaired healing [Unknown]
  - Toothache [Unknown]
  - Drug dose omission [Unknown]
  - Dizziness [Unknown]
  - Somnolence [Unknown]
  - Contusion [Unknown]
  - Nausea [Unknown]

NARRATIVE: CASE EVENT DATE: 20160314
